FAERS Safety Report 14449638 (Version 1)
Quarter: 2018Q1

REPORT INFORMATION
  Report Type: Spontaneous
  Country: US (occurrence: US)
  Receive Date: 20180126
  Receipt Date: 20180126
  Transmission Date: 20180509
  Serious: No
  Sender: FDA-Public Use
  Company Number: None

PATIENT
  Sex: Female

DRUGS (2)
  1. METHOTREXATE UNKNOWN GENERIC [Suspect]
     Active Substance: METHOTREXATE
     Indication: PSORIASIS
  2. METHOTREXATE UNKNOWN GENERIC [Suspect]
     Active Substance: METHOTREXATE
     Indication: PSORIATIC ARTHROPATHY

REACTIONS (8)
  - Vomiting [None]
  - Peripheral coldness [None]
  - Confusional state [None]
  - Feeling hot [None]
  - Muscle spasms [None]
  - Blood pressure abnormal [None]
  - Tremor [None]
  - Nausea [None]
